FAERS Safety Report 8208252 (Version 2)
Quarter: 2014Q4

REPORT INFORMATION
  Report Type: Spontaneous
  Country: US (occurrence: US)
  Receive Date: 20111028
  Receipt Date: 20141022
  Transmission Date: 20150529
  Serious: Yes (Hospitalization, Other)
  Sender: FDA-Public Use
  Company Number: US-GLAXOSMITHKLINE-A0950455A

PATIENT
  Age: 72 Year
  Sex: Female

DRUGS (7)
  1. PROAIR HFA [Concomitant]
     Active Substance: ALBUTEROL SULFATE
  2. SINGULAIR [Concomitant]
     Active Substance: MONTELUKAST SODIUM
  3. QVAR [Concomitant]
     Active Substance: BECLOMETHASONE DIPROPIONATE
  4. UNSPECIFIED MEDICATIONS [Concomitant]
     Active Substance: UNSPECIFIED INGREDIENT
  5. ADVAIR HFA [Suspect]
     Active Substance: FLUTICASONE PROPIONATE\SALMETEROL XINAFOATE
     Indication: ASTHMA
     Dosage: 1 PUFF(S), BID
     Route: 055
     Dates: start: 20110523, end: 20110523
  6. ADVAIR HFA [Suspect]
     Active Substance: FLUTICASONE PROPIONATE\SALMETEROL XINAFOATE
     Indication: ASTHMA
     Dosage: 1 PUFF(S), BID
     Route: 055
  7. ALBUTEROL SULFATE. [Concomitant]
     Active Substance: ALBUTEROL SULFATE

REACTIONS (18)
  - Nasopharyngitis [Unknown]
  - Heart rate increased [Recovered/Resolved]
  - Anxiety [Recovered/Resolved]
  - Rash [Unknown]
  - Feeling abnormal [Recovered/Resolved]
  - Asthma [Unknown]
  - Blood glucose increased [Unknown]
  - Dyspnoea [Unknown]
  - Diverticulitis [Unknown]
  - Blood glucose decreased [Unknown]
  - Wheezing [Unknown]
  - Influenza [Unknown]
  - Dizziness [Recovered/Resolved]
  - Treatment noncompliance [Unknown]
  - Stress [Unknown]
  - Bronchitis [Unknown]
  - Breast cyst [Unknown]
  - Sinusitis [Unknown]

NARRATIVE: CASE EVENT DATE: 20110523
